FAERS Safety Report 24883761 (Version 1)
Quarter: 2025Q1

REPORT INFORMATION
  Report Type: Spontaneous
  Country: JP (occurrence: JP)
  Receive Date: 20250124
  Receipt Date: 20250124
  Transmission Date: 20250409
  Serious: Yes (Other)
  Sender: TAKEDA
  Company Number: JP-TAKEDA-2025TUS007466

PATIENT
  Sex: Female

DRUGS (1)
  1. LIALDA [Suspect]
     Active Substance: MESALAMINE
     Indication: Product used for unknown indication
     Dosage: 4800 MILLIGRAM, QD

REACTIONS (3)
  - Haematochezia [Recovering/Resolving]
  - Colitis ulcerative [Recovering/Resolving]
  - Frequent bowel movements [Recovering/Resolving]
